FAERS Safety Report 5140454-9 (Version None)
Quarter: 2006Q4

REPORT INFORMATION
  Report Type: 
  Country: None (occurrence: None)
  Receive Date: 20061025
  Receipt Date: 20061025
  Transmission Date: 20070319
  Serious: Yes (Hospitalization)
  Sender: FDA-Public Use
  Company Number: None

PATIENT
  Age: 89 Year
  Sex: Male
  Weight: 75.6 kg

DRUGS (12)
  1. AUGMENTIN '125' [Suspect]
     Indication: SKIN LACERATION
     Dosage: 875 MG BID PO
     Route: 048
     Dates: start: 20050620, end: 20060627
  2. ASPIRIN [Concomitant]
  3. DIGOXIN [Concomitant]
  4. FLOMAX [Concomitant]
  5. TOPROX XL [Concomitant]
  6. COSOPT EYE DROPS [Concomitant]
  7. GLYBURIDE [Concomitant]
  8. MUCINEX [Concomitant]
  9. COMBIVENT [Concomitant]
  10. SEROQUEL [Concomitant]
  11. LORAZEPAM [Concomitant]
  12. TYLENOL 650 [Concomitant]

REACTIONS (13)
  - ASTHENIA [None]
  - ATELECTASIS [None]
  - BLOOD GLUCOSE INCREASED [None]
  - DECREASED APPETITE [None]
  - HYPERSENSITIVITY [None]
  - LETHARGY [None]
  - LUNG INFILTRATION [None]
  - OEDEMA [None]
  - PNEUMONIA [None]
  - PRURITUS [None]
  - RASH MACULO-PAPULAR [None]
  - STRESS [None]
  - WHITE BLOOD CELL COUNT INCREASED [None]
